FAERS Safety Report 8939285 (Version 2)
Quarter: 2012Q4

REPORT INFORMATION
  Report Type: 
  Country: CO (occurrence: CO)
  Receive Date: 20121203
  Receipt Date: 20121210
  Transmission Date: 20130627
  Serious: Yes (Hospitalization)
  Sender: FDA-Public Use
  Company Number: CO-SANOFI-AVENTIS-2012SA087760

PATIENT
  Age: 30 Month
  Sex: Male

DRUGS (2)
  1. LANTUS [Suspect]
     Indication: DIABETES MELLITUS
     Route: 058
     Dates: start: 2011
  2. INSULIN ASPART [Suspect]
     Indication: DIABETES MELLITUS
     Route: 058
     Dates: start: 2011

REACTIONS (2)
  - Hyperglycaemia [Recovered/Resolved]
  - Blister [Recovered/Resolved]
